FAERS Safety Report 25606108 (Version 1)
Quarter: 2025Q3

REPORT INFORMATION
  Report Type: Spontaneous
  Country: EU (occurrence: EU)
  Receive Date: 20250725
  Receipt Date: 20250725
  Transmission Date: 20251021
  Serious: Yes (Other)
  Sender: JOHNSON AND JOHNSON
  Company Number: EU-TEVA-2022-CZ-2038817

PATIENT
  Age: 57 Year
  Sex: Female

DRUGS (30)
  1. TOPIRAMATE [Suspect]
     Active Substance: TOPIRAMATE
     Indication: Migraine prophylaxis
     Route: 065
  2. TOPIRAMATE [Suspect]
     Active Substance: TOPIRAMATE
     Route: 048
  3. TOPIRAMATE [Suspect]
     Active Substance: TOPIRAMATE
     Route: 048
  4. CITALOPRAM [Suspect]
     Active Substance: CITALOPRAM
     Indication: Migraine prophylaxis
     Route: 065
  5. CITALOPRAM [Suspect]
     Active Substance: CITALOPRAM
     Route: 065
  6. GABAPENTIN [Suspect]
     Active Substance: GABAPENTIN
     Indication: Migraine prophylaxis
     Route: 065
  7. GABAPENTIN [Suspect]
     Active Substance: GABAPENTIN
     Route: 065
  8. METOPROLOL [Suspect]
     Active Substance: METOPROLOL
     Indication: Migraine prophylaxis
     Route: 065
  9. METOPROLOL [Suspect]
     Active Substance: METOPROLOL
     Route: 065
  10. PREGABALIN [Suspect]
     Active Substance: PREGABALIN
     Indication: Migraine prophylaxis
     Route: 065
  11. PREGABALIN [Suspect]
     Active Substance: PREGABALIN
     Route: 065
  12. SUMATRIPTAN [Suspect]
     Active Substance: SUMATRIPTAN
     Indication: Migraine
     Route: 065
  13. SUMATRIPTAN [Suspect]
     Active Substance: SUMATRIPTAN
     Route: 065
  14. MAGNESIUM [Suspect]
     Active Substance: MAGNESIUM
     Indication: Migraine prophylaxis
     Route: 065
  15. MAGNESIUM [Suspect]
     Active Substance: MAGNESIUM
     Route: 065
  16. NARATRIPTAN [Suspect]
     Active Substance: NARATRIPTAN HYDROCHLORIDE
     Indication: Migraine
     Route: 065
  17. NARATRIPTAN [Suspect]
     Active Substance: NARATRIPTAN HYDROCHLORIDE
     Route: 065
  18. VALPROIC ACID [Suspect]
     Active Substance: VALPROIC ACID
     Indication: Migraine prophylaxis
     Route: 065
  19. AMITRIPTYLINE [Concomitant]
     Active Substance: AMITRIPTYLINE
     Indication: Migraine prophylaxis
     Dosage: 50 MILLIGRAM, ONCE A DAY (50 MILLIGRAM DAILY)
     Route: 065
  20. AMITRIPTYLINE [Concomitant]
     Active Substance: AMITRIPTYLINE
     Dosage: 50 MILLIGRAM DAILY;
     Route: 065
  21. CINNARIZINE [Concomitant]
     Active Substance: CINNARIZINE
     Indication: Migraine prophylaxis
     Route: 065
  22. CINNARIZINE [Concomitant]
     Active Substance: CINNARIZINE
     Route: 065
  23. ELETRIPTAN [Concomitant]
     Active Substance: ELETRIPTAN
     Indication: Migraine
     Route: 065
  24. ELETRIPTAN [Concomitant]
     Active Substance: ELETRIPTAN
     Route: 065
  25. IBUPROFEN [Concomitant]
     Active Substance: IBUPROFEN
     Indication: Migraine
     Route: 065
  26. IBUPROFEN [Concomitant]
     Active Substance: IBUPROFEN
     Route: 065
  27. IBUPROFEN [Concomitant]
     Active Substance: IBUPROFEN
     Route: 065
  28. VENLAFAXINE [Concomitant]
     Active Substance: VENLAFAXINE HYDROCHLORIDE
     Indication: Migraine prophylaxis
     Route: 065
  29. VENLAFAXINE [Concomitant]
     Active Substance: VENLAFAXINE HYDROCHLORIDE
     Route: 065
  30. IBUPROFEN [Concomitant]
     Active Substance: IBUPROFEN
     Indication: Product used for unknown indication
     Route: 065

REACTIONS (2)
  - Leukopenia [Recovered/Resolved]
  - Therapeutic product effect decreased [Unknown]
